FAERS Safety Report 20523451 (Version 3)
Quarter: 2022Q1

REPORT INFORMATION
  Report Type: Spontaneous
  Country: CO (occurrence: CO)
  Receive Date: 20220228
  Receipt Date: 20220328
  Transmission Date: 20220423
  Serious: Yes (Other)
  Sender: FDA-Public Use
  Company Number: CO-PFIZER INC-202200281720

PATIENT
  Age: 65 Year
  Sex: Male

DRUGS (2)
  1. ENBREL [Suspect]
     Active Substance: ETANERCEPT
     Indication: Rheumatoid arthritis
     Dosage: 50 MG, WEEKLY
     Route: 058
  2. ENBREL [Suspect]
     Active Substance: ETANERCEPT
     Dosage: 50 MG, UNSPECIFIED FRECUENCY
     Route: 058

REACTIONS (10)
  - Myocardial infarction [Unknown]
  - Tremor [Unknown]
  - Product dispensing issue [Not Recovered/Not Resolved]
  - Product dose omission in error [Unknown]
  - Bone pain [Recovered/Resolved]
  - Mental disorder [Unknown]
  - Hypoaesthesia [Unknown]
  - Paraesthesia [Unknown]
  - Fear [Unknown]
  - Malaise [Unknown]

NARRATIVE: CASE EVENT DATE: 20190901
